FAERS Safety Report 14977151 (Version 1)
Quarter: 2018Q2

REPORT INFORMATION
  Report Type: Spontaneous
  Country: DE (occurrence: DE)
  Receive Date: 20180606
  Receipt Date: 20180606
  Transmission Date: 20180711
  Serious: Yes (Hospitalization)
  Sender: FDA-Public Use
  Company Number: DE-TEVA-2018-DE-902408

PATIENT
  Age: 76 Year
  Sex: Female
  Weight: 76 kg

DRUGS (14)
  1. FUROSEMIDE. [Suspect]
     Active Substance: FUROSEMIDE
     Route: 048
  2. NOVALGIN (METAMIZOLE SODIUM) [Concomitant]
     Active Substance: METAMIZOLE SODIUM
     Route: 048
  3. VENLAFAXINE [Concomitant]
     Active Substance: VENLAFAXINE HYDROCHLORIDE
     Dosage: RETARD-CAPSULE
     Route: 048
  4. DEKRISTOL [Concomitant]
     Active Substance: CHOLECALCIFEROL
     Dosage: 20 000 IE / WEEK, 1X/W?CHTL.
     Route: 048
  5. VENLAFAXIN [Concomitant]
     Active Substance: VENLAFAXINE HYDROCHLORIDE
     Dosage: DELAY-TABLETS
     Route: 048
  6. MOVICOL [Concomitant]
     Active Substance: POLYETHYLENE GLYCOL 3350\POTASSIUM CHLORIDE\SODIUM BICARBONATE\SODIUM CHLORIDE
     Dosage: B.B.
     Route: 048
  7. TAVOR (LORAZEPAM) [Concomitant]
     Active Substance: LORAZEPAM
     Dosage: B.B.
     Route: 048
  8. HYDROMORPHONE [Concomitant]
     Active Substance: HYDROMORPHONE
     Route: 048
  9. RISPERIDON [Concomitant]
     Active Substance: RISPERIDONE
     Route: 048
  10. OXCARBAZEPIN [Concomitant]
     Active Substance: OXCARBAZEPINE
     Route: 048
  11. HCT [Concomitant]
     Active Substance: HYDROCHLOROTHIAZIDE
     Route: 048
  12. URIVESC [Concomitant]
     Active Substance: TROSPIUM CHLORIDE
     Dosage: RETARD-CAPSULES
     Route: 048
  13. KALINOR-RETARD P 600 MG HARTKAPSELN, RETARDIERT [Concomitant]
     Dosage: 0-2-0, RETARD-CAPSULE
     Route: 048
  14. OMEP [Concomitant]
     Active Substance: OMEPRAZOLE
     Route: 048

REACTIONS (3)
  - Dizziness [Unknown]
  - Hypokalaemia [Unknown]
  - Fall [Unknown]
